FAERS Safety Report 4964451-9 (Version None)
Quarter: 2006Q1

REPORT INFORMATION
  Report Type: 
  Country: None (occurrence: None)
  Receive Date: 20060331
  Receipt Date: 20060322
  Transmission Date: 20060701
  Serious: Yes (Hospitalization)
  Sender: FDA-Public Use
  Company Number: 2005US001027

PATIENT
  Age: 23 Year
  Sex: Male

DRUGS (9)
  1. PROGRAF [Suspect]
     Indication: PROPHYLAXIS AGAINST TRANSPLANT REJECTION
     Dosage: BID, ORAL
     Route: 048
     Dates: start: 20050615
  2. MYCOPHENOLATE MOFETIL [Suspect]
     Indication: PROPHYLAXIS AGAINST TRANSPLANT REJECTION
     Dosage: 100.00 MG, BID, ORAL
     Route: 048
  3. PREDNISONE TAB [Suspect]
     Indication: PROPHYLAXIS AGAINST TRANSPLANT REJECTION
     Dosage: 10 MG, UID/QD, ORAL
     Route: 048
  4. BACTRIM [Concomitant]
  5. FLUCONAZOLE [Concomitant]
  6. CLONIDINE [Concomitant]
  7. ACYCLOVIR [Concomitant]
  8. PEPCID [Concomitant]
  9. NORVASC [Concomitant]

REACTIONS (3)
  - DISEASE RECURRENCE [None]
  - FOCAL GLOMERULOSCLEROSIS [None]
  - HYPERKALAEMIA [None]
